FAERS Safety Report 23403016 (Version 2)
Quarter: 2024Q1

REPORT INFORMATION
  Report Type: Spontaneous
  Country: US (occurrence: US)
  Receive Date: 20240115
  Receipt Date: 20240205
  Transmission Date: 20240410
  Serious: Yes (Other)
  Sender: FDA-Public Use
  Company Number: US-HETERO-HET2024US00041

PATIENT
  Sex: Male
  Weight: 92.063 kg

DRUGS (2)
  1. DABIGATRAN ETEXILATE [Suspect]
     Active Substance: DABIGATRAN ETEXILATE
     Indication: Thrombosis
     Dosage: TWO 75 MG CAPSULES ALONG WITH ONE 75 MG CAPSULE(ONE 75 MG CAPSULE IN THE MORNING AND 150 MG CAPSULE
     Route: 048
     Dates: start: 20240102
  2. CELECOXIB [Concomitant]
     Active Substance: CELECOXIB
     Indication: Product used for unknown indication
     Dosage: 200 MILLIGRAM, BID
     Route: 065

REACTIONS (2)
  - Gastric ulcer [Recovering/Resolving]
  - Product substitution issue [Unknown]
